FAERS Safety Report 7646992-9 (Version None)
Quarter: 2011Q3

REPORT INFORMATION
  Report Type: 
  Country: None (occurrence: None)
  Receive Date: 20110801
  Receipt Date: 20110719
  Transmission Date: 20111222
  Serious: Yes (Other)
  Sender: FDA-Public Use
  Company Number: JP-ELI_LILLY_AND_COMPANY-JP201101001183

PATIENT
  Sex: Female

DRUGS (8)
  1. EVISTA [Suspect]
     Indication: OSTEOPOROSIS POSTMENOPAUSAL
     Dosage: 60 MG, DAILY (1/D)
     Route: 048
     Dates: start: 20100612, end: 20100710
  2. ALEROFF [Concomitant]
     Dosage: UNK, UNK
     Route: 048
     Dates: start: 20050101
  3. NICHI E-NATE [Concomitant]
     Dosage: UNK, UNK
     Route: 048
     Dates: start: 20090101
  4. SERENAMIN [Concomitant]
     Dosage: UNK, UNK
     Route: 048
     Dates: start: 20040101
  5. RADEN [Concomitant]
     Dosage: UNK, UNK
     Route: 048
     Dates: start: 20070101
  6. MECOBALAMIN [Concomitant]
  7. D ALFA [Concomitant]
     Dosage: UNK, UNK
     Route: 048
     Dates: start: 20040101
  8. ALUMINIUM HYDROXIDE W/MAGNESIUM HYDROXIDE [Concomitant]
     Dosage: UNK, UNK
     Route: 048
     Dates: start: 20100101

REACTIONS (5)
  - OCULAR HYPERAEMIA [None]
  - RASH GENERALISED [None]
  - DRY EYE [None]
  - EYE PRURITUS [None]
  - STOMATITIS [None]
